FAERS Safety Report 5590071-1 (Version None)
Quarter: 2008Q1

REPORT INFORMATION
  Report Type: 
  Country: None (occurrence: None)
  Receive Date: 20080114
  Receipt Date: 20070122
  Transmission Date: 20080703
  Serious: No
  Sender: FDA-Public Use
  Company Number: US-ABBOTT-07P-163-0357458-00

PATIENT
  Weight: 8.9 kg

DRUGS (1)
  1. OMNICEF ORAL SUSPENSION [Suspect]
     Indication: OTITIS MEDIA
     Route: 048
     Dates: start: 20070113, end: 20070113

REACTIONS (2)
  - CONTUSION [None]
  - HAEMATOMA [None]
